FAERS Safety Report 8390878-1 (Version None)
Quarter: 2012Q2

REPORT INFORMATION
  Report Type: 
  Country: None (occurrence: None)
  Receive Date: 20120529
  Receipt Date: 20120521
  Transmission Date: 20120825
  Serious: Yes (Hospitalization)
  Sender: FDA-Public Use
  Company Number: US-BAYER-2012-020479

PATIENT
  Age: 41 Year
  Sex: Female

DRUGS (5)
  1. MULTI-VITAMIN [Concomitant]
     Dosage: UNK UNK, DAILY
  2. IBUPROFEN [Concomitant]
     Dosage: 800 MG, TID AS NEEDED
  3. RELAFEN [Concomitant]
     Dosage: 750 MG, PRN
     Route: 048
  4. YAZ [Suspect]
     Indication: MENSTRUATION IRREGULAR
     Dosage: 1, QD
     Route: 048
     Dates: start: 20080517, end: 20090315
  5. ZANAFLEX [Concomitant]
     Dosage: 2 MG, TID
     Route: 048

REACTIONS (1)
  - PULMONARY EMBOLISM [None]
